FAERS Safety Report 7919019-9 (Version None)
Quarter: 2011Q4

REPORT INFORMATION
  Report Type: 
  Country: None (occurrence: None)
  Receive Date: 20111116
  Receipt Date: 20111107
  Transmission Date: 20120403
  Serious: Yes (Other)
  Sender: FDA-Public Use
  Company Number: US-ASTRAZENECA-2011SE61657

PATIENT
  Age: 56 Year
  Sex: Female
  Weight: 54.4 kg

DRUGS (10)
  1. ZEGERID [Concomitant]
     Indication: GASTROOESOPHAGEAL REFLUX DISEASE
     Route: 048
  2. XANAX [Concomitant]
     Indication: ANXIETY
     Route: 048
  3. NEXIUM [Suspect]
     Indication: GASTROOESOPHAGEAL REFLUX DISEASE
     Route: 048
     Dates: start: 20090101, end: 20110214
  4. ZYRTEC [Concomitant]
     Indication: RASH
     Route: 048
  5. XYZAL [Concomitant]
     Indication: RASH
     Route: 048
  6. XYZAL [Concomitant]
     Indication: PRURITUS
     Route: 048
  7. LEVOTHYROXINE SODIUM [Concomitant]
     Indication: HYPOTHYROIDISM
     Route: 048
     Dates: start: 19870101
  8. NEXIUM [Suspect]
     Route: 048
     Dates: end: 20110201
  9. ZYRTEC [Concomitant]
     Indication: PRURITUS
     Route: 048
  10. CARVEDILOL [Concomitant]
     Indication: BLOOD PRESSURE INCREASED
     Route: 048
     Dates: start: 20090101

REACTIONS (9)
  - DRUG ERUPTION [None]
  - DERMATITIS [None]
  - FOLLICULITIS [None]
  - ORAL FUNGAL INFECTION [None]
  - ANXIETY [None]
  - DRUG HYPERSENSITIVITY [None]
  - FUNGAL OESOPHAGITIS [None]
  - RASH PRURITIC [None]
  - MALAISE [None]
